FAERS Safety Report 7299392-8 (Version None)
Quarter: 2011Q1

REPORT INFORMATION
  Report Type: 
  Country: None (occurrence: None)
  Receive Date: 20110217
  Receipt Date: 20110209
  Transmission Date: 20110831
  Serious: Yes (Hospitalization)
  Sender: FDA-Public Use
  Company Number: B0699542A

PATIENT
  Age: 7 Decade
  Sex: Female

DRUGS (1)
  1. SUMATRIPTAN SUCCINATE [Suspect]
     Dosage: 50MG PER DAY
     Route: 048

REACTIONS (4)
  - CONVULSION [None]
  - HALLUCINATION [None]
  - DELUSION [None]
  - HALLUCINATION, AUDITORY [None]
